FAERS Safety Report 25873467 (Version 1)
Quarter: 2025Q4

REPORT INFORMATION
  Report Type: Spontaneous
  Country: CN (occurrence: CN)
  Receive Date: 20251002
  Receipt Date: 20251002
  Transmission Date: 20260118
  Serious: Yes (Other)
  Sender: PFIZER
  Company Number: CN-PFIZER INC-PV202500116626

PATIENT
  Age: 49 Year
  Sex: Female
  Weight: 59.9 kg

DRUGS (4)
  1. EPIRUBICIN [Suspect]
     Active Substance: EPIRUBICIN
     Indication: Breast cancer female
     Dosage: 140.000 MG, 1X/DAY
     Route: 041
     Dates: start: 20250923, end: 20250923
  2. CYCLOPHOSPHAMIDE [Suspect]
     Active Substance: CYCLOPHOSPHAMIDE
     Indication: Breast cancer female
     Dosage: 0.845 G, 1X/DAY
     Route: 041
     Dates: start: 20250923, end: 20250923
  3. SODIUM CHLORIDE [Concomitant]
     Active Substance: SODIUM CHLORIDE
     Indication: Breast cancer female
     Dosage: 100.000 ML, 1X/DAY
     Route: 041
     Dates: start: 20250923, end: 20250923
  4. SODIUM CHLORIDE [Concomitant]
     Active Substance: SODIUM CHLORIDE
     Dosage: 100.000 ML, 1X/DAY
     Route: 041
     Dates: start: 20250923, end: 20250923

REACTIONS (3)
  - Nausea [Recovering/Resolving]
  - Vomiting [Recovering/Resolving]
  - Initial insomnia [Recovering/Resolving]

NARRATIVE: CASE EVENT DATE: 20250923
